FAERS Safety Report 25062503 (Version 1)
Quarter: 2025Q1

REPORT INFORMATION
  Report Type: Spontaneous
  Country: US (occurrence: None)
  Receive Date: 20250311
  Receipt Date: 20250311
  Transmission Date: 20250409
  Serious: Yes (Other)
  Sender: BANNER
  Company Number: US-PTA-005975

PATIENT

DRUGS (2)
  1. NAPROXEN [Suspect]
     Active Substance: NAPROXEN
     Indication: Back pain
  2. NAPROXEN [Suspect]
     Active Substance: NAPROXEN
     Indication: Headache

REACTIONS (3)
  - Adverse event [Unknown]
  - Tooth disorder [Unknown]
  - Skin discolouration [Unknown]
